FAERS Safety Report 5938268-2 (Version None)
Quarter: 2008Q4

REPORT INFORMATION
  Report Type: 
  Country: None (occurrence: None)
  Receive Date: 20081031
  Receipt Date: 20081020
  Transmission Date: 20090506
  Serious: Yes (Disabling)
  Sender: FDA-Public Use
  Company Number: FR-GENENTECH-270497

PATIENT
  Sex: Female

DRUGS (3)
  1. AVASTIN [Suspect]
     Indication: BREAST CANCER
     Dosage: 0.714 MG/KG, Q2W
     Route: 042
     Dates: start: 20080305
  2. DOXORUBICIN HCL [Suspect]
     Indication: BREAST CANCER
     Dosage: 2.928 MG, UNK
     Route: 042
     Dates: start: 20080305
  3. ZOMETA [Suspect]
     Indication: METASTASES TO BONE
     Dosage: 0.035 UNK, UNK
     Route: 042

REACTIONS (3)
  - APHTHOUS STOMATITIS [None]
  - INFECTION [None]
  - OSTEONECROSIS [None]
